FAERS Safety Report 25585992 (Version 1)
Quarter: 2025Q3

REPORT INFORMATION
  Report Type: Spontaneous
  Country: JP (occurrence: JP)
  Receive Date: 20250721
  Receipt Date: 20250721
  Transmission Date: 20251021
  Serious: Yes (Hospitalization, Other)
  Sender: MERCK SHARP & DOHME LLC
  Company Number: JP-MSD-2311JPN002240J

PATIENT
  Age: 74 Year
  Sex: Male
  Weight: 57 kg

DRUGS (7)
  1. KEYTRUDA [Suspect]
     Active Substance: PEMBROLIZUMAB
     Indication: Renal cell carcinoma stage IV
     Dosage: DOSE DESCRIPTION : 200 MILLIGRAM, Q3W?DAILY DOSE : 9.4 MILLIGRAM?REGIMEN DOSE : 200  MILLIGRAM
     Route: 041
     Dates: start: 20231025, end: 20231025
  2. LENVIMA [Suspect]
     Active Substance: LENVATINIB
     Indication: Renal cell carcinoma stage IV
     Dosage: DOSE DESCRIPTION : 20 MILLIGRAM, QD?DAILY DOSE : 20 MILLIGRAM?CONCENTRATION: 10 MILLIGRAM?REGIMEN...
     Route: 048
     Dates: start: 20231025, end: 20231108
  3. ASPIRIN [Concomitant]
     Active Substance: ASPIRIN
     Route: 065
  4. VALSARTAN [Concomitant]
     Active Substance: VALSARTAN
     Dosage: DOSE DESCRIPTION : 20 MILLIGRAM, QD?DAILY DOSE : 20 MILLIGRAM
     Route: 065
     Dates: end: 20231116
  5. VONOPRAZAN FUMARATE [Concomitant]
     Active Substance: VONOPRAZAN FUMARATE
     Route: 065
  6. BEZAFIBRATE [Concomitant]
     Active Substance: BEZAFIBRATE
     Route: 065
  7. ISOSORBIDE MONONITRATE [Concomitant]
     Active Substance: ISOSORBIDE MONONITRATE
     Route: 065

REACTIONS (5)
  - Cardiac failure [Recovered/Resolved]
  - Acute myocardial infarction [Unknown]
  - Immune-mediated myocarditis [Recovered/Resolved]
  - Immune-mediated myasthenia gravis [Recovering/Resolving]
  - Hypertension [Recovering/Resolving]

NARRATIVE: CASE EVENT DATE: 20231026
